FAERS Safety Report 7360040-X (Version None)
Quarter: 2011Q1

REPORT INFORMATION
  Report Type: 
  Country: None (occurrence: None)
  Receive Date: 20110317
  Receipt Date: 20081015
  Transmission Date: 20110831
  Serious: Yes (Hospitalization, Other)
  Sender: FDA-Public Use
  Company Number: GB-MYLANLABS-2007S1008838

PATIENT
  Age: 30 Year
  Sex: Female

DRUGS (15)
  1. CYSTAGON [Suspect]
     Route: 048
     Dates: start: 20070126
  2. PREDNISONE TAB [Concomitant]
  3. ASPIRIN [Concomitant]
  4. CYSTAGON [Suspect]
     Route: 048
  5. BISOPROLOL [Concomitant]
  6. FOLIC ACID [Concomitant]
  7. PHENYTOIN [Concomitant]
  8. CYSTAGON [Suspect]
     Indication: CYSTINOSIS
     Route: 048
     Dates: end: 20070126
  9. FUROSEMIDE [Concomitant]
  10. SIMVASTATIN [Concomitant]
  11. LEVOTHYROXINE SODIUM [Concomitant]
  12. ALPHACALCIDOL [Concomitant]
  13. MYCOPHENOLATE MEFETIL [Concomitant]
  14. LANSOPRAZOLE [Concomitant]
  15. THYROXINE [Concomitant]

REACTIONS (3)
  - HYPOKALAEMIA [None]
  - HYPERCALCAEMIA [None]
  - SKIN PAPILLOMA [None]
